FAERS Safety Report 11455737 (Version 1)
Quarter: 2015Q3

REPORT INFORMATION
  Report Type: Spontaneous
  Country: US (occurrence: US)
  Receive Date: 20150903
  Receipt Date: 20150903
  Transmission Date: 20151125
  Serious: Yes (Other)
  Sender: FDA-Public Use
  Company Number: US-TAKEDA-2014TUS000493

PATIENT

DRUGS (10)
  1. JANUVIA [Concomitant]
     Active Substance: SITAGLIPTIN PHOSPHATE
     Dosage: UNK
  2. CYCLOSET [Concomitant]
     Active Substance: BROMOCRIPTINE MESYLATE
     Indication: DIABETES MELLITUS
     Dosage: UNK
     Dates: start: 2013
  3. LANTUS [Concomitant]
     Active Substance: INSULIN GLARGINE
     Dosage: UNK
     Dates: start: 2012
  4. BYETTA [Concomitant]
     Active Substance: EXENATIDE
     Dosage: UNK
  5. METFORMIN [Concomitant]
     Active Substance: METFORMIN HYDROCHLORIDE
     Dosage: UNK
     Dates: start: 2009, end: 2012
  6. GLUCOTROL [Concomitant]
     Active Substance: GLIPIZIDE
     Dosage: UNK
  7. ACTOS [Suspect]
     Active Substance: PIOGLITAZONE HYDROCHLORIDE
     Indication: TYPE 2 DIABETES MELLITUS
     Dosage: 15 MG, UNK
     Route: 048
     Dates: start: 20090918, end: 20091114
  8. INVOKANA [Concomitant]
     Active Substance: CANAGLIFLOZIN
     Indication: DIABETES MELLITUS
     Dosage: UNK
     Dates: start: 2013
  9. DIABETA                            /00145301/ [Concomitant]
     Dosage: UNK
  10. VICTOZA [Concomitant]
     Active Substance: LIRAGLUTIDE
     Indication: DIABETES MELLITUS
     Dosage: UNK
     Dates: start: 2013

REACTIONS (1)
  - Bladder cancer [Unknown]

NARRATIVE: CASE EVENT DATE: 2010
